FAERS Safety Report 7172780-6 (Version None)
Quarter: 2010Q4

REPORT INFORMATION
  Report Type: 
  Country: None (occurrence: None)
  Receive Date: 20101219
  Receipt Date: 20100212
  Transmission Date: 20110411
  Serious: No
  Sender: FDA-Public Use
  Company Number: US-AMGEN-KDL392497

PATIENT

DRUGS (2)
  1. ENBREL [Suspect]
     Indication: PSORIASIS
     Dosage: 50 MG, 2 TIMES/WK
     Route: 058
     Dates: start: 20050806
  2. METHOTREXATE [Concomitant]
     Dosage: 5 MG, QWK
     Route: 048

REACTIONS (3)
  - ABDOMINAL PAIN [None]
  - CHOLELITHIASIS [None]
  - MUSCLE SPASMS [None]
